FAERS Safety Report 5370857-9 (Version None)
Quarter: 2007Q2

REPORT INFORMATION
  Report Type: 
  Country: None (occurrence: None)
  Receive Date: 20070626
  Receipt Date: 20070220
  Transmission Date: 20071010
  Serious: No
  Sender: FDA-Public Use
  Company Number: US-BAUSCH-2007BL000594

PATIENT
  Age: 59 Year
  Sex: Female

DRUGS (5)
  1. ALBUTEROL SULFATE [Suspect]
     Indication: DYSPNOEA
     Route: 049
     Dates: start: 20070219, end: 20070219
  2. ALBUTEROL SULFATE [Suspect]
     Indication: COUGH
     Route: 049
     Dates: start: 20070219, end: 20070219
  3. ALBUTEROL SULFATE [Suspect]
     Indication: LOWER RESPIRATORY TRACT INFECTION
     Route: 049
     Dates: start: 20070219, end: 20070219
  4. SYNTHROID [Concomitant]
  5. ASCORBIC ACID [Concomitant]
     Indication: VITAMIN SUPPLEMENTATION

REACTIONS (6)
  - ASTHMA [None]
  - CONDITION AGGRAVATED [None]
  - COUGH [None]
  - DYSPNOEA [None]
  - FEELING ABNORMAL [None]
  - PULMONARY CONGESTION [None]
